FAERS Safety Report 6486073-3 (Version None)
Quarter: 2009Q4

REPORT INFORMATION
  Report Type: 
  Country: None (occurrence: None)
  Receive Date: 20091209
  Receipt Date: 20090802
  Transmission Date: 20100525
  Serious: No
  Sender: FDA-Public Use
  Company Number: US-AMGEN-KDL358457

PATIENT
  Sex: Male

DRUGS (3)
  1. ENBREL [Suspect]
     Indication: RHEUMATOID ARTHRITIS
     Route: 058
     Dates: start: 20060223
  2. PLAQUENIL [Concomitant]
     Dates: start: 20080801
  3. METHOTREXATE [Concomitant]
     Route: 048
     Dates: start: 20060223

REACTIONS (4)
  - GASTRIC DISORDER [None]
  - LISTLESS [None]
  - MUSCULOSKELETAL PAIN [None]
  - PROSTATOMEGALY [None]
